FAERS Safety Report 5330981-3 (Version None)
Quarter: 2007Q2

REPORT INFORMATION
  Report Type: 
  Country: None (occurrence: None)
  Receive Date: 20070522
  Receipt Date: 20070511
  Transmission Date: 20071010
  Serious: Yes (Death, Hospitalization)
  Sender: FDA-Public Use
  Company Number: ES-ROCHE-497490

PATIENT
  Age: 51 Year
  Sex: Female
  Weight: 66 kg

DRUGS (6)
  1. XELODA [Suspect]
     Dosage: DOSAGE REGIMEN NOT REPORTED.
     Route: 048
     Dates: start: 20070212, end: 20070221
  2. LOITIN [Concomitant]
     Indication: CANDIDIASIS
     Dosage: STRENGTH REPORTED AS 200 MG/ 5 ML / POWDER
     Route: 048
     Dates: start: 20070219, end: 20070305
  3. DURAGESIC-100 [Concomitant]
     Dosage: DOSAGE REGIMEN REPORTED AS 25 MG / WEEK
     Route: 062
     Dates: start: 20070219, end: 20070305
  4. NEOSIDANTOINA [Concomitant]
     Indication: EPILEPSY
     Route: 048
     Dates: start: 20030101, end: 20070305
  5. NEURONTIN [Concomitant]
     Indication: EPILEPSY
     Route: 048
     Dates: start: 20030101, end: 20070305
  6. PANTECTA [Concomitant]
     Dosage: DOSAGE REGIMEN UNKNOWN.
     Route: 065

REACTIONS (4)
  - DIARRHOEA [None]
  - GRANULOCYTOPENIA [None]
  - MUCOSAL INFLAMMATION [None]
  - NEUTROPENIA [None]
